FAERS Safety Report 4384805-1 (Version None)
Quarter: 2004Q2

REPORT INFORMATION
  Report Type: 
  Country: None (occurrence: None)
  Receive Date: 20040621
  Receipt Date: 20040611
  Transmission Date: 20050107
  Serious: Yes (Other)
  Sender: FDA-Public Use
  Company Number: GBWYE775824MAY04

PATIENT
  Age: 26 Year
  Sex: Female

DRUGS (8)
  1. RAPAMUNE [Suspect]
     Indication: BLOOD CREATININE INCREASED
     Dosage: 4 MG 1X PER 1 DAY ORAL
     Route: 048
     Dates: start: 20040306
  2. OMEPRAZOLE [Concomitant]
  3. PREDNISOLONE [Concomitant]
  4. CARBAMAZEPINE [Concomitant]
  5. MYCOPHENOLATE MOFETIL (MYCOPHENOLATE MOFETIL) [Concomitant]
  6. ASPIRIN [Concomitant]
  7. FUROSEMIDE [Concomitant]
  8. ERYTHROPOIETIN (ERYTHROPOIETIN) [Concomitant]

REACTIONS (1)
  - HYPOGLYCAEMIA [None]
